FAERS Safety Report 4293929-9 (Version None)
Quarter: 2004Q1

REPORT INFORMATION
  Report Type: 
  Country: None (occurrence: None)
  Receive Date: 20040212
  Receipt Date: 20040212
  Transmission Date: 20041129
  Serious: Yes (Hospitalization)
  Sender: FDA-Public Use
  Company Number: None

PATIENT
  Age: 70 Year
  Sex: Female

DRUGS (8)
  1. FRAGMIN [Suspect]
     Indication: DEEP VENOUS THROMBOSIS PROPHYLAXIS
     Dosage: 5000 U QD SUBCUTANEOUS
     Route: 058
     Dates: start: 20040128, end: 20040206
  2. PLAVIX [Suspect]
     Indication: DEEP VENOUS THROMBOSIS PROPHYLAXIS
     Dosage: 75 MG QD ORAL
     Route: 048
     Dates: start: 20040128, end: 20040206
  3. ASPIRIN [Concomitant]
  4. LIPITOR [Concomitant]
  5. HYDROCHLOROTHIAZIDE [Concomitant]
  6. ZEBETA [Concomitant]
  7. COLACE [Concomitant]
  8. ALLEGRA [Concomitant]

REACTIONS (2)
  - CEREBRAL INFARCTION [None]
  - HAEMORRHAGE [None]
